FAERS Safety Report 5624292-6 (Version None)
Quarter: 2008Q1

REPORT INFORMATION
  Report Type: 
  Country: None (occurrence: None)
  Receive Date: 20080206
  Receipt Date: 20080206
  Transmission Date: 20080703
  Serious: Yes (Disabling, Other)
  Sender: FDA-Public Use
  Company Number: None

PATIENT
  Age: 46 Year
  Weight: 58.0604 kg

DRUGS (2)
  1. ATIVAN [Suspect]
     Indication: ANXIETY
     Dosage: 2MG 3 TIMES PO
     Route: 048
     Dates: start: 20000101, end: 20050707
  2. ATIVAN [Suspect]
     Indication: ANXIETY
     Dosage: 2MG 3 TIMES PO
     Route: 048
     Dates: start: 20050707, end: 20080204

REACTIONS (2)
  - DRUG INEFFECTIVE [None]
  - PHARMACEUTICAL PRODUCT COMPLAINT [None]
